FAERS Safety Report 11378738 (Version 1)
Quarter: 2015Q3

REPORT INFORMATION
  Report Type: Spontaneous
  Country: US (occurrence: US)
  Receive Date: 20150811
  Receipt Date: 20150811
  Transmission Date: 20151125
  Serious: No
  Sender: FDA-Public Use
  Company Number: US-ELI_LILLY_AND_COMPANY-US200905001502

PATIENT
  Age: 66 Year
  Sex: Female

DRUGS (7)
  1. HUMULIN R [Suspect]
     Active Substance: INSULIN HUMAN
  2. HUMULIN R [Suspect]
     Active Substance: INSULIN HUMAN
  3. SINGULAIR [Concomitant]
     Active Substance: MONTELUKAST SODIUM
     Dosage: UNK, EACH EVENING
  4. LISINOPRIL. [Concomitant]
     Active Substance: LISINOPRIL
  5. FEXOFENADINE [Concomitant]
     Active Substance: FEXOFENADINE\FEXOFENADINE HYDROCHLORIDE
     Indication: MULTIPLE ALLERGIES
  6. LODINE [Concomitant]
     Active Substance: ETODOLAC
     Indication: PAIN
     Dosage: 400 MG, EACH MORNING
  7. HUMULIN R [Suspect]
     Active Substance: INSULIN HUMAN
     Dosage: 55 U, UNK
     Route: 058
     Dates: start: 200812

REACTIONS (4)
  - Ear infection [Recovered/Resolved]
  - Back pain [Recovered/Resolved]
  - Blood glucose increased [Unknown]
  - Hypoaesthesia [Recovered/Resolved]

NARRATIVE: CASE EVENT DATE: 200902
